FAERS Safety Report 10140595 (Version 1)
Quarter: 2014Q2

REPORT INFORMATION
  Report Type: Spontaneous
  Country: GB (occurrence: GB)
  Receive Date: 20140429
  Receipt Date: 20140429
  Transmission Date: 20141212
  Serious: Yes (Other)
  Sender: FDA-Public Use
  Company Number: GB-TEVA-478083ISR

PATIENT
  Age: 11 Year
  Sex: Female
  Weight: 40.36 kg

DRUGS (1)
  1. CLARITHROMYCIN [Suspect]
     Indication: OROPHARYNGEAL PAIN
     Dosage: 20 ML DAILY;
     Route: 048
     Dates: start: 20140410, end: 20140412

REACTIONS (4)
  - Nausea [Recovered/Resolved]
  - Nightmare [Recovered/Resolved]
  - Anxiety [Recovered/Resolved]
  - Vomiting [Recovered/Resolved]
